FAERS Safety Report 11545997 (Version 1)
Quarter: 2015Q3

REPORT INFORMATION
  Report Type: Spontaneous
  Country: DE (occurrence: DE)
  Receive Date: 20150924
  Receipt Date: 20150924
  Transmission Date: 20151125
  Serious: Yes (Other)
  Sender: FDA-Public Use
  Company Number: DE-PFIZER INC-2015308520

PATIENT
  Age: 21 Year
  Sex: Female

DRUGS (2)
  1. PHENYTOIN. [Suspect]
     Active Substance: PHENYTOIN
     Indication: EPILEPSY
     Dosage: 0.3 G, DAILY
  2. PHENYTOIN. [Suspect]
     Active Substance: PHENYTOIN
     Dosage: 0.4 G, DAILY

REACTIONS (9)
  - Extrapyramidal disorder [Recovered/Resolved]
  - Tinnitus [Recovered/Resolved]
  - Vomiting [Recovered/Resolved]
  - Toxicity to various agents [Recovered/Resolved]
  - Diplopia [Recovered/Resolved]
  - Cerebral disorder [Recovered/Resolved]
  - CSF test abnormal [Recovered/Resolved]
  - Nervous system disorder [Recovered/Resolved]
  - Vestibular disorder [Recovered/Resolved]
